FAERS Safety Report 4436180-1 (Version None)
Quarter: 2004Q3

REPORT INFORMATION
  Report Type: 
  Country: None (occurrence: None)
  Receive Date: 20040830
  Receipt Date: 20040505
  Transmission Date: 20050211
  Serious: Yes (Other)
  Sender: FDA-Public Use
  Company Number: US-BRISTOL-MYERS SQUIBB COMPANY-12580288

PATIENT
  Age: 76 Year
  Sex: Female
  Weight: 75 kg

DRUGS (8)
  1. ERBITUX [Suspect]
     Indication: COLON CANCER METASTATIC
     Dosage: 750 MG LOADING DOSE ON 31-MAR-2004.
     Route: 042
     Dates: start: 20040331, end: 20040331
  2. BENADRYL [Suspect]
     Indication: PREMEDICATION
     Dosage: DECREASED TO 25 MG FROM WEEK 2.
     Route: 042
     Dates: start: 20040331, end: 20040331
  3. FLUOROURACIL [Concomitant]
     Route: 042
  4. LEUCOVORIN [Concomitant]
     Route: 042
  5. CAMPTOSAR [Concomitant]
     Route: 042
  6. TYLENOL [Concomitant]
     Indication: PREMEDICATION
     Route: 048
     Dates: start: 20040331, end: 20040331
  7. KYTRIL [Concomitant]
     Indication: PREMEDICATION
     Route: 042
  8. DECADRON [Concomitant]
     Indication: PREMEDICATION
     Route: 042

REACTIONS (5)
  - DERMATITIS ACNEIFORM [None]
  - OEDEMA PERIPHERAL [None]
  - PAIN OF SKIN [None]
  - SKIN CHAPPED [None]
  - SOMNOLENCE [None]
